FAERS Safety Report 12008352 (Version 1)
Quarter: 2016Q1

REPORT INFORMATION
  Report Type: Spontaneous
  Country: US (occurrence: US)
  Receive Date: 20160205
  Receipt Date: 20160205
  Transmission Date: 20160526
  Serious: Yes (Other)
  Sender: FDA-Public Use
  Company Number: US-ABBVIE-15K-163-1443676-00

PATIENT
  Age: 51 Year
  Sex: Female

DRUGS (1)
  1. HUMIRA [Suspect]
     Active Substance: ADALIMUMAB
     Indication: PSORIATIC ARTHROPATHY
     Route: 065
     Dates: start: 201502

REACTIONS (10)
  - Dysstasia [Unknown]
  - Muscular weakness [Unknown]
  - Weight increased [Unknown]
  - Gait disturbance [Unknown]
  - Foot fracture [Unknown]
  - Muscle spasms [Unknown]
  - Somnolence [Unknown]
  - Impaired healing [Unknown]
  - Intervertebral disc operation [Unknown]
  - Drug ineffective [Unknown]

NARRATIVE: CASE EVENT DATE: 201507
